FAERS Safety Report 18589710 (Version 2)
Quarter: 2020Q4

REPORT INFORMATION
  Report Type: Report from Study
  Country: CA (occurrence: CA)
  Receive Date: 20201208
  Receipt Date: 20201216
  Transmission Date: 20210114
  Serious: Yes (Other)
  Sender: FDA-Public Use
  Company Number: PHHY2018CA004932

PATIENT
  Age: 38 Year
  Sex: Female

DRUGS (13)
  1. COSENTYX [Suspect]
     Active Substance: SECUKINUMAB
     Dosage: 300 MG, QMO
     Route: 058
     Dates: start: 20180720
  2. COSENTYX [Suspect]
     Active Substance: SECUKINUMAB
     Dosage: 450 MG (ALTERNATING DOSES-150 MG ON DAY 14 AND 300 MG ON DAY 30, Q2W (SENSOREADY PEN)
     Route: 058
     Dates: start: 20190731
  3. CELECOXIB. [Concomitant]
     Active Substance: CELECOXIB
     Indication: PRODUCT USED FOR UNKNOWN INDICATION
     Dosage: UNK UNK, QD (ON DRUG FOR ABOUT 2 YEARS)
     Route: 065
  4. MELOXICAM. [Concomitant]
     Active Substance: MELOXICAM
     Dosage: 7.5 G, BID (PHYSICIAN RE-PRESCRIBED, PATIENT STILL ON DRUG)
     Route: 065
  5. COSENTYX [Suspect]
     Active Substance: SECUKINUMAB
     Dosage: 150 MG, QMO
     Route: 058
  6. BACLOFEN. [Suspect]
     Active Substance: BACLOFEN
     Indication: ANKYLOSING SPONDYLITIS
     Dosage: 10 MG, BID
     Route: 065
     Dates: start: 201706, end: 201710
  7. MELOXICAM. [Concomitant]
     Active Substance: MELOXICAM
     Indication: PRODUCT USED FOR UNKNOWN INDICATION
     Dosage: 7.5 G, BID
     Route: 065
     Dates: start: 20170310, end: 20170418
  8. NAPROXEN. [Concomitant]
     Active Substance: NAPROXEN
     Indication: PRODUCT USED FOR UNKNOWN INDICATION
     Dosage: 500 MG, BID
     Route: 065
     Dates: start: 2010
  9. COSENTYX [Suspect]
     Active Substance: SECUKINUMAB
     Indication: ANKYLOSING SPONDYLITIS
     Dosage: 150 MG, QW
     Route: 058
     Dates: start: 20180427
  10. COSENTYX [Suspect]
     Active Substance: SECUKINUMAB
     Dosage: 450 MG (ALTERNATING DOSES-150 MG ON DAY 14 AND 300 MG ON DAY 30, Q2W)
     Route: 058
  11. CORTISONE [Concomitant]
     Active Substance: CORTISONE
     Indication: PRODUCT USED FOR UNKNOWN INDICATION
     Dosage: UNK
     Route: 065
  12. COSENTYX [Suspect]
     Active Substance: SECUKINUMAB
     Dosage: 300 MG, Q4W
     Route: 058
     Dates: start: 20180822
  13. COSENTYX [Suspect]
     Active Substance: SECUKINUMAB
     Dosage: 150 MG, Q2W
     Route: 058

REACTIONS (30)
  - Fatigue [Unknown]
  - Fibromyalgia [Unknown]
  - Myalgia [Unknown]
  - Spinal osteoarthritis [Unknown]
  - Musculoskeletal stiffness [Recovering/Resolving]
  - Arthritis [Unknown]
  - Back injury [Unknown]
  - Concomitant disease aggravated [Unknown]
  - Myofascial pain syndrome [Unknown]
  - Neuropathy peripheral [Unknown]
  - Anxiety [Unknown]
  - Dry mouth [Unknown]
  - Drug ineffective [Unknown]
  - Nasopharyngitis [Not Recovered/Not Resolved]
  - Back pain [Unknown]
  - Tendon disorder [Unknown]
  - Pain in extremity [Unknown]
  - Chondrosis [Unknown]
  - Joint effusion [Unknown]
  - Cyst [Unknown]
  - Sleep apnoea syndrome [Unknown]
  - Abdominal distension [Unknown]
  - Enthesopathy [Unknown]
  - Tenosynovitis [Unknown]
  - Illness [Recovered/Resolved]
  - Product prescribing error [Unknown]
  - Inappropriate schedule of product administration [Unknown]
  - Pyrexia [Recovered/Resolved]
  - Pain [Recovering/Resolving]
  - Infection [Unknown]

NARRATIVE: CASE EVENT DATE: 20180525
